FAERS Safety Report 4746291-9 (Version None)
Quarter: 2005Q3

REPORT INFORMATION
  Report Type: 
  Country: None (occurrence: None)
  Receive Date: 20050808
  Receipt Date: 20050622
  Transmission Date: 20060218
  Serious: Yes (Other)
  Sender: FDA-Public Use
  Company Number: 1636

PATIENT
  Age: 18 Year
  Sex: Female

DRUGS (1)
  1. AMNESTEEM [Suspect]
     Dates: start: 20031113, end: 20040925

REACTIONS (1)
  - DRUG EXPOSURE DURING PREGNANCY [None]
